FAERS Safety Report 7025430-3 (Version None)
Quarter: 2010Q4

REPORT INFORMATION
  Report Type: 
  Country: None (occurrence: None)
  Receive Date: 20101001
  Receipt Date: 20100927
  Transmission Date: 20110411
  Serious: Yes (Other)
  Sender: FDA-Public Use
  Company Number: CHPA2009US09596

PATIENT
  Sex: Male

DRUGS (3)
  1. ASCRIPTIN (NCH) [Suspect]
     Indication: CARDIAC DISORDER
     Dosage: 325 MG, QD
     Route: 048
     Dates: start: 19990101
  2. PLAVIX [Concomitant]
     Route: 048
  3. DRUG THERAPY NOS [Concomitant]

REACTIONS (4)
  - CARDIAC DISORDER [None]
  - CARDIAC OPERATION [None]
  - INTENTIONAL DRUG MISUSE [None]
  - OFF LABEL USE [None]
